FAERS Safety Report 14781369 (Version 1)
Quarter: 2018Q2

REPORT INFORMATION
  Report Type: Spontaneous
  Country: US (occurrence: US)
  Receive Date: 20180419
  Receipt Date: 20180419
  Transmission Date: 20180711
  Serious: No
  Sender: FDA-Public Use
  Company Number: US-NEUROCRINE BIOSCIENCES INC.-2018NBI00444

PATIENT
  Age: 77 Year
  Sex: Female
  Weight: 55.39 kg

DRUGS (17)
  1. INGREZZA [Suspect]
     Active Substance: VALBENAZINE
     Route: 048
     Dates: start: 2018
  2. INGREZZA [Suspect]
     Active Substance: VALBENAZINE
     Route: 048
     Dates: start: 20180307, end: 2018
  3. PROTONIX [Concomitant]
     Active Substance: PANTOPRAZOLE SODIUM
     Indication: GASTROOESOPHAGEAL REFLUX DISEASE
  4. VITAMIN D [Concomitant]
     Active Substance: CHOLECALCIFEROL
  5. CLONAZEPAM. [Concomitant]
     Active Substance: CLONAZEPAM
  6. CALCIUM [Concomitant]
     Active Substance: CALCIUM
  7. LEXAPRO [Concomitant]
     Active Substance: ESCITALOPRAM OXALATE
     Indication: DEPRESSION
  8. TOPOROL XL [Concomitant]
  9. METAMUCIL [Concomitant]
     Active Substance: PLANTAGO SEED
  10. SYNTHROID [Concomitant]
     Active Substance: LEVOTHYROXINE SODIUM
     Indication: AUTOIMMUNE THYROIDITIS
  11. LIPITOR [Concomitant]
     Active Substance: ATORVASTATIN CALCIUM
  12. PLAVIX [Concomitant]
     Active Substance: CLOPIDOGREL BISULFATE
  13. BABY ASPIRIN [Concomitant]
     Active Substance: ASPIRIN
  14. D-MANNOSE [Concomitant]
     Indication: URINARY TRACT INFECTION
  15. INGREZZA [Suspect]
     Active Substance: VALBENAZINE
     Indication: DYSKINESIA
     Route: 048
     Dates: start: 20180201, end: 2018
  16. GABAPENTIN. [Concomitant]
     Active Substance: GABAPENTIN
     Indication: NEUROPATHY PERIPHERAL
  17. VITAMIN B12 [Concomitant]
     Active Substance: CYANOCOBALAMIN

REACTIONS (3)
  - Somnolence [Not Recovered/Not Resolved]
  - Dermatitis allergic [Unknown]
  - Urinary tract infection [Unknown]

NARRATIVE: CASE EVENT DATE: 2018
